FAERS Safety Report 13078067 (Version 1)
Quarter: 2017Q1

REPORT INFORMATION
  Report Type: Report from Study
  Country: US (occurrence: US)
  Receive Date: 20170102
  Receipt Date: 20170102
  Transmission Date: 20170428
  Serious: Yes (Other)
  Sender: FDA-Public Use
  Company Number: US-ROCHE-1873746

PATIENT
  Sex: Female
  Weight: 77.18 kg

DRUGS (2)
  1. LUCENTIS [Suspect]
     Active Substance: RANIBIZUMAB
     Indication: AGE-RELATED MACULAR DEGENERATION
     Dosage: ONGOING: NO
     Route: 050
     Dates: start: 201308
  2. LUCENTIS [Suspect]
     Active Substance: RANIBIZUMAB
     Indication: RETINAL VASCULAR THROMBOSIS
     Dosage: ONGOING: NO
     Route: 050

REACTIONS (3)
  - Blindness [Recovering/Resolving]
  - Ocular discomfort [Recovering/Resolving]
  - Eye haemorrhage [Recovering/Resolving]
